FAERS Safety Report 4481894-0 (Version None)
Quarter: 2004Q4

REPORT INFORMATION
  Report Type: 
  Country: None (occurrence: None)
  Receive Date: 20041022
  Receipt Date: 20041014
  Transmission Date: 20050328
  Serious: Yes (Life-Threatening)
  Sender: FDA-Public Use
  Company Number: IT-JNJFOC-20041004475

PATIENT
  Age: 39 Year
  Sex: Male

DRUGS (2)
  1. REMICADE [Suspect]
     Indication: RHEUMATOID ARTHRITIS
     Route: 042
  2. CYCLOSPORINE [Concomitant]
     Indication: RHEUMATOID ARTHRITIS
     Route: 049

REACTIONS (5)
  - ATRIAL FIBRILLATION [None]
  - DISSEMINATED TUBERCULOSIS [None]
  - PERICARDITIS TUBERCULOUS [None]
  - PULMONARY TUBERCULOSIS [None]
  - TRANSIENT ISCHAEMIC ATTACK [None]
